FAERS Safety Report 5517814-7 (Version None)
Quarter: 2007Q4

REPORT INFORMATION
  Report Type: 
  Country: None (occurrence: None)
  Receive Date: 20071113
  Receipt Date: 20071101
  Transmission Date: 20080405
  Serious: Yes (Life-Threatening, Hospitalization)
  Sender: FDA-Public Use
  Company Number: 2007SP003705

PATIENT
  Age: 65 Year
  Sex: Female
  Weight: 54.4316 kg

DRUGS (11)
  1. BROVANA [Suspect]
     Indication: CHRONIC OBSTRUCTIVE PULMONARY DISEASE
     Dosage: 15 UG/2ML;BID;INHALATION
     Route: 055
     Dates: start: 20070101, end: 20071007
  2. BROVANA [Suspect]
     Indication: CHRONIC OBSTRUCTIVE PULMONARY DISEASE
     Dosage: 15 UG/2ML;BID;INHALATION
     Route: 055
     Dates: start: 20071015
  3. OXYGEN [Concomitant]
  4. PREDNISONE TAB [Concomitant]
  5. TIOTROPIUM [Concomitant]
  6. THEOPHYLLINE [Concomitant]
  7. DUONEB [Concomitant]
  8. PULMICORT [Concomitant]
  9. FORMOTEROL FUMARATE [Concomitant]
  10. PANTOPRAZOLE SODIUM [Concomitant]
  11. ESTRADIOL [Concomitant]

REACTIONS (11)
  - ASTHENIA [None]
  - CHRONIC OBSTRUCTIVE PULMONARY DISEASE [None]
  - DRY MOUTH [None]
  - MALAISE [None]
  - NERVOUSNESS [None]
  - PHARYNGOLARYNGEAL PAIN [None]
  - PNEUMONIA [None]
  - REFUSAL OF TREATMENT BY PATIENT [None]
  - RESPIRATORY FAILURE [None]
  - STATUS ASTHMATICUS [None]
  - VOMITING [None]
